FAERS Safety Report 10472233 (Version 1)
Quarter: 2014Q3

REPORT INFORMATION
  Report Type: Spontaneous
  Country: US (occurrence: US)
  Receive Date: 20140924
  Receipt Date: 20140924
  Transmission Date: 20150326
  Serious: No
  Sender: FDA-Public Use
  Company Number: US-009507513-1409USA005709

PATIENT
  Age: 21 Year
  Sex: Female

DRUGS (1)
  1. NEXPLANON [Suspect]
     Active Substance: ETONOGESTREL
     Indication: PROPHYLAXIS
     Dosage: 1 STANDARD PACKAGE OF PF APPLI OF 1
     Route: 059
     Dates: start: 20140708

REACTIONS (5)
  - Implant site infection [Unknown]
  - Implant site erythema [Unknown]
  - Implant site inflammation [Unknown]
  - Purulence [Unknown]
  - Device expulsion [Unknown]

NARRATIVE: CASE EVENT DATE: 2014
